FAERS Safety Report 24245520 (Version 1)
Quarter: 2024Q3

REPORT INFORMATION
  Report Type: Spontaneous
  Country: US (occurrence: US)
  Receive Date: 20240824
  Receipt Date: 20240824
  Transmission Date: 20241017
  Serious: Yes (Other)
  Sender: ROCHE
  Company Number: US-ROCHE-2511459

PATIENT
  Age: 70 Year
  Sex: Male

DRUGS (1)
  1. MYCOPHENOLATE MOFETIL [Suspect]
     Active Substance: MYCOPHENOLATE MOFETIL
     Indication: Scleroderma
     Route: 065

REACTIONS (2)
  - Papilloma viral infection [Unknown]
  - Oropharyngeal squamous cell carcinoma [Recovered/Resolved]
